FAERS Safety Report 12626156 (Version 2)
Quarter: 2016Q3

REPORT INFORMATION
  Report Type: Other
  Country: None (occurrence: US)
  Receive Date: 20160805
  Receipt Date: 20160808
  Transmission Date: 20161109
  Serious: Yes (Other)
  Sender: FDA-Public Use
  Company Number: US-GUTHY-RENKER LLC-1055920

PATIENT
  Sex: Female

DRUGS (2)
  1. CIPRO FOR UTI, UNDISCLOSED ANTIBIOTIC FOR UTI [Concomitant]
  2. IT COSMETICS BYEBYE FOUNDATION SPF 50+ [Suspect]
     Active Substance: TITANIUM DIOXIDE\ZINC OXIDE
     Indication: PROPHYLAXIS AGAINST SOLAR RADIATION
     Route: 061
     Dates: start: 20160725, end: 20160727

REACTIONS (6)
  - Swelling face [None]
  - Dysphagia [Recovered/Resolved]
  - Speech disorder [None]
  - Eye swelling [None]
  - Erythema [None]
  - Rash [None]

NARRATIVE: CASE EVENT DATE: 20160727
